FAERS Safety Report 14668943 (Version 3)
Quarter: 2018Q3

REPORT INFORMATION
  Report Type: Spontaneous
  Country: JP (occurrence: JP)
  Receive Date: 20180322
  Receipt Date: 20180829
  Transmission Date: 20181010
  Serious: Yes (Hospitalization)
  Sender: FDA-Public Use
  Company Number: JP-ASTRAZENECA-2018SE35081

PATIENT
  Age: 24379 Day
  Sex: Female
  Weight: 42 kg

DRUGS (6)
  1. MEPTIN AIR [Concomitant]
     Active Substance: PROCATEROL HYDROCHLORIDE
     Indication: ASTHMA
     Dosage: 2 DF UNKNOWN, FOR ATTACK2.0DF UNKNOWN
     Route: 055
  2. FASENRA [Suspect]
     Active Substance: BENRALIZUMAB
     Indication: ASTHMA
     Dosage: UNKNOWN
     Route: 058
     Dates: start: 20180216
  3. FLUTIFORM [Concomitant]
     Active Substance: FLUTICASONE PROPIONATE\FORMOTEROL FUMARATE
     Indication: ASTHMA
     Route: 055
     Dates: start: 20151209
  4. FASENRA [Suspect]
     Active Substance: BENRALIZUMAB
     Indication: ASTHMA
     Dosage: 30.0MG UNKNOWN
     Route: 058
     Dates: start: 20180214
  5. MONTELUKAST [Concomitant]
     Active Substance: MONTELUKAST SODIUM
     Indication: ASTHMA
     Route: 048
     Dates: start: 20171213
  6. SPIRIVA [Concomitant]
     Active Substance: TIOTROPIUM BROMIDE MONOHYDRATE
     Indication: ASTHMA
     Route: 055
     Dates: start: 20150701

REACTIONS (3)
  - Pneumonia [Recovered/Resolved]
  - Dyspnoea [Unknown]
  - Asthma [Unknown]

NARRATIVE: CASE EVENT DATE: 20180312
